FAERS Safety Report 15032147 (Version 1)
Quarter: 2018Q2

REPORT INFORMATION
  Report Type: Spontaneous
  Country: PL (occurrence: PL)
  Receive Date: 20180619
  Receipt Date: 20180619
  Transmission Date: 20180711
  Serious: Yes (Other)
  Sender: FDA-Public Use
  Company Number: PL-ALLERGAN-1831091US

PATIENT
  Sex: Male

DRUGS (1)
  1. MESALAZINE UNK [Suspect]
     Active Substance: MESALAMINE
     Indication: COLITIS ULCERATIVE
     Dosage: 2 G, QD
     Route: 048

REACTIONS (8)
  - Frequent bowel movements [Recovered/Resolved]
  - Affective disorder [Recovering/Resolving]
  - Flatulence [Recovered/Resolved]
  - Pyrexia [Recovering/Resolving]
  - Haematochezia [Recovered/Resolved]
  - Gastrointestinal sounds abnormal [Recovered/Resolved]
  - Drug ineffective [Unknown]
  - Abdominal pain [Recovered/Resolved]
